FAERS Safety Report 21801475 (Version 1)
Quarter: 2022Q4

REPORT INFORMATION
  Report Type: Spontaneous
  Country: CN (occurrence: None)
  Receive Date: 20221230
  Receipt Date: 20221230
  Transmission Date: 20230112
  Serious: Yes (Hospitalization)
  Sender: FDA-Public Use
  Company Number: 2022A417738

PATIENT
  Age: 18790 Day
  Sex: Female

DRUGS (1)
  1. TAGRISSO [Suspect]
     Active Substance: OSIMERTINIB
     Indication: Neoplasm progression
     Route: 048
     Dates: start: 20220930, end: 20221030

REACTIONS (3)
  - Traumatic lung injury [Unknown]
  - Pneumonia [Unknown]
  - Lung disorder [Unknown]

NARRATIVE: CASE EVENT DATE: 20221204
